FAERS Safety Report 11987926 (Version 1)
Quarter: 2016Q1

REPORT INFORMATION
  Report Type: Spontaneous
  Country: US (occurrence: US)
  Receive Date: 20160202
  Receipt Date: 20160202
  Transmission Date: 20160526
  Serious: Yes (Other)
  Sender: FDA-Public Use
  Company Number: US-CIPLA LTD.-2016US00646

PATIENT

DRUGS (4)
  1. AMLODIPINE [Suspect]
     Active Substance: AMLODIPINE BESYLATE
     Dosage: NORVASC 5 MG, QD (DOSE DECREASED)
     Route: 048
  2. EXFORGE [Suspect]
     Active Substance: AMLODIPINE BESYLATE\VALSARTAN
     Indication: HYPERTENSION
     Dosage: AMLODIPINE 7MG/VALSARTAN 160 ONE TABLET DAILY
     Route: 048
  3. AMLODIPINE [Suspect]
     Active Substance: AMLODIPINE BESYLATE
     Indication: HYPERTENSION
     Dosage: 2.5 MG, QD
     Route: 048
     Dates: end: 201511
  4. SYNTHROID [Concomitant]
     Active Substance: LEVOTHYROXINE SODIUM
     Indication: HYPOTHYROIDISM
     Dosage: 0.75 MCG, QD
     Route: 048

REACTIONS (6)
  - Dysphagia [Unknown]
  - Dizziness [None]
  - Hypoaesthesia [None]
  - Peripheral swelling [Recovered/Resolved]
  - Vertigo [Unknown]
  - Joint swelling [Recovered/Resolved]
